FAERS Safety Report 9718950 (Version 1)
Quarter: 2013Q4

REPORT INFORMATION
  Report Type: Spontaneous
  Country: US (occurrence: None)
  Receive Date: 20131125
  Receipt Date: 20131125
  Transmission Date: 20140711
  Serious: Yes (Death, Hospitalization)
  Sender: FDA-Public Use
  Company Number: UTC-040562

PATIENT
  Age: 63 Year
  Sex: Female
  Weight: 77.7 kg

DRUGS (1)
  1. TYVASO (6 MICROGRAM, AEROSOL FOR INHALATION) (TREPROSTINIL SODIUM) [Suspect]
     Indication: PULMONARY ARTERIAL HYPERTENSION
     Dosage: 18-72 MCG (4 IN 1 D), INHALATION
     Route: 055
     Dates: start: 20130828

REACTIONS (1)
  - Cardio-respiratory arrest [None]
